FAERS Safety Report 10905880 (Version 1)
Quarter: 2015Q1

REPORT INFORMATION
  Report Type: Spontaneous
  Country: DK (occurrence: DK)
  Receive Date: 20150311
  Receipt Date: 20150311
  Transmission Date: 20150721
  Serious: Yes (Life-Threatening, Hospitalization)
  Sender: FDA-Public Use
  Company Number: DK-WATSON-2015-04495

PATIENT
  Age: 37 Year
  Sex: Male

DRUGS (5)
  1. RISOLID [Suspect]
     Active Substance: CHLORDIAZEPOXIDE
     Indication: WITHDRAWAL SYNDROME
     Dosage: 1250 MG, DAILY
     Route: 048
     Dates: start: 20150206
  2. PIPERACILLIN AND TAZOBACTAM [Concomitant]
     Active Substance: PIPERACILLIN SODIUM\TAZOBACTAM SODIUM
     Indication: PRODUCT USED FOR UNKNOWN INDICATION
     Dosage: UNK
     Route: 065
     Dates: start: 20150205
  3. NICORETTE INVISI [Concomitant]
     Active Substance: NICOTINE
     Indication: PRODUCT USED FOR UNKNOWN INDICATION
     Dosage: UNK
     Route: 065
     Dates: start: 20150206
  4. SPIRIVA [Concomitant]
     Active Substance: TIOTROPIUM BROMIDE MONOHYDRATE
     Indication: PRODUCT USED FOR UNKNOWN INDICATION
     Dosage: UNK
     Route: 065
     Dates: start: 20150206
  5. IPRAMOL [Concomitant]
     Active Substance: ALBUTEROL SULFATE\IPRATROPIUM BROMIDE
     Indication: PRODUCT USED FOR UNKNOWN INDICATION
     Dosage: UNK
     Route: 065
     Dates: start: 20150206

REACTIONS (8)
  - Overdose [Not Recovered/Not Resolved]
  - Depressed level of consciousness [Unknown]
  - Pallor [Unknown]
  - Respiratory failure [Not Recovered/Not Resolved]
  - Restlessness [Unknown]
  - Tachypnoea [Not Recovered/Not Resolved]
  - Hyperhidrosis [Unknown]
  - Disorientation [Unknown]

NARRATIVE: CASE EVENT DATE: 20150207
